FAERS Safety Report 6015530-9 (Version None)
Quarter: 2009Q1

REPORT INFORMATION
  Report Type: 
  Country: None (occurrence: None)
  Receive Date: 20081219
  Receipt Date: 20081219
  Transmission Date: 20090719
  Serious: Yes (Hospitalization)
  Sender: FDA-Public Use
  Company Number: None

PATIENT
  Age: 60 Year
  Sex: Male

DRUGS (2)
  1. INSULIN [Suspect]
     Indication: DIABETES MELLITUS
     Dosage: 50 UNITS EVERY DAY SQ
     Route: 058
     Dates: start: 20081014, end: 20081205
  2. INSULIN [Suspect]
     Indication: DIABETES MELLITUS
     Dosage: 30 UNITS TID SQ
     Route: 058
     Dates: start: 20081014, end: 20081105

REACTIONS (4)
  - HYPOGLYCAEMIA [None]
  - INCORRECT DOSE ADMINISTERED [None]
  - INTERNATIONAL NORMALISED RATIO ABNORMAL [None]
  - MEMORY IMPAIRMENT [None]
